FAERS Safety Report 7346574-2 (Version None)
Quarter: 2011Q1

REPORT INFORMATION
  Report Type: 
  Country: None (occurrence: None)
  Receive Date: 20110311
  Receipt Date: 20110304
  Transmission Date: 20110831
  Serious: Yes (Other)
  Sender: FDA-Public Use
  Company Number: JP-SANOFI-AVENTIS-200711913JP

PATIENT
  Age: 30 Year
  Sex: Female

DRUGS (3)
  1. BUTENAFINE [Concomitant]
     Indication: TINEA PEDIS
     Route: 061
  2. FEXOFENADINE HCL [Suspect]
     Route: 048
     Dates: start: 20070711, end: 20070711
  3. ALL OTHER THERAPEUTIC PRODUCTS [Concomitant]
     Route: 061
     Dates: start: 20070710

REACTIONS (1)
  - LOSS OF CONSCIOUSNESS [None]
